FAERS Safety Report 14507578 (Version 4)
Quarter: 2019Q4

REPORT INFORMATION
  Report Type: Report from Study
  Country: US (occurrence: US)
  Receive Date: 20180208
  Receipt Date: 20191104
  Transmission Date: 20200122
  Serious: Yes (Death, Hospitalization, Disabling)
  Sender: FDA-Public Use
  Company Number: US-ACTELION-A-NJ2018-167144

PATIENT
  Age: 53 Year
  Sex: Female
  Weight: 52.15 kg

DRUGS (18)
  1. URSODIOL. [Concomitant]
     Active Substance: URSODIOL
  2. OMEPRAZOLE. [Concomitant]
     Active Substance: OMEPRAZOLE
  3. CALCIUM [Concomitant]
     Active Substance: CALCIUM
  4. LEVOTHYROXINE. [Concomitant]
     Active Substance: LEVOTHYROXINE
  5. LORATADINE. [Concomitant]
     Active Substance: LORATADINE
  6. METOPROLOL. [Concomitant]
     Active Substance: METOPROLOL
  7. CARTIA XT [Concomitant]
     Active Substance: DILTIAZEM HYDROCHLORIDE
  8. OPSUMIT [Suspect]
     Active Substance: MACITENTAN
     Indication: PULMONARY ARTERIAL HYPERTENSION
     Dosage: 10 MG, QD
     Route: 048
     Dates: start: 20160630, end: 20191021
  9. FOLIC ACID. [Concomitant]
     Active Substance: FOLIC ACID
  10. RENA-VITE [Concomitant]
     Active Substance: ASCORBIC ACID\BIOTIN\CALCIUM PANTOTHENATE\CYANOCOBALAMIN\FOLIC ACID\NIACINAMIDE\PYRIDOXINE HYDROCHLORIDE\RIBOFLAVIN\THIAMINE MONONITRATE
  11. ELIQUIS [Concomitant]
     Active Substance: APIXABAN
  12. HYDROXYZINE PAMOATE. [Concomitant]
     Active Substance: HYDROXYZINE PAMOATE
  13. TRAVOPROST. [Concomitant]
     Active Substance: TRAVOPROST
  14. BENADRYL [Concomitant]
     Active Substance: DIPHENHYDRAMINE HYDROCHLORIDE
  15. LOSARTAN. [Concomitant]
     Active Substance: LOSARTAN
  16. HYDROMORPHONE [Concomitant]
     Active Substance: HYDROMORPHONE
  17. FERRIPROX [Concomitant]
     Active Substance: DEFERIPRONE
  18. TIMOLOL. [Concomitant]
     Active Substance: TIMOLOL

REACTIONS (10)
  - Fluid retention [Unknown]
  - Liver disorder [Unknown]
  - Headache [Unknown]
  - Constipation [Unknown]
  - Cholecystitis infective [Unknown]
  - Hepatomegaly [Not Recovered/Not Resolved]
  - Sickle cell disease [Unknown]
  - Death [Fatal]
  - Epistaxis [Unknown]
  - Dialysis [Unknown]

NARRATIVE: CASE EVENT DATE: 20191021
